FAERS Safety Report 19744919 (Version 5)
Quarter: 2021Q4

REPORT INFORMATION
  Report Type: Spontaneous
  Country: ES (occurrence: ES)
  Receive Date: 20210825
  Receipt Date: 20211027
  Transmission Date: 20220303
  Serious: Yes (Hospitalization, Other)
  Sender: FDA-Public Use
  Company Number: ES-OTSUKA-2021_005765

PATIENT
  Age: 33 Year
  Sex: Male

DRUGS (11)
  1. QUETIAPINE [Suspect]
     Active Substance: QUETIAPINE
     Indication: Product used for unknown indication
     Dosage: 100 MILLIGRAM, QD (100 MG, QD)
     Route: 065
     Dates: start: 20210120, end: 20210214
  2. ARIPIPRAZOLE [Suspect]
     Active Substance: ARIPIPRAZOLE
     Indication: Product used for unknown indication
     Dosage: 30 MILLIGRAM, QD (30 MG, QD)
     Route: 065
     Dates: start: 20210120
  3. ARIPIPRAZOLE [Suspect]
     Active Substance: ARIPIPRAZOLE
     Dosage: 15 MILLIGRAM, QD
     Route: 048
     Dates: start: 20210128, end: 20210128
  4. ABILIFY [Suspect]
     Active Substance: ARIPIPRAZOLE
     Indication: Product used for unknown indication
     Dosage: 1 DOSAGE FORM (1 DF, UNK)
     Route: 048
  5. ABILIFY [Suspect]
     Active Substance: ARIPIPRAZOLE
     Dosage: 15 MILLIGRAM, QD (15 MG (JUST FOR DAY)
     Route: 048
     Dates: start: 20210128, end: 20210128
  6. ABILIFY [Suspect]
     Active Substance: ARIPIPRAZOLE
     Dosage: 30 MILLIGRAM, QD
     Route: 048
  7. ABILIFY [Suspect]
     Active Substance: ARIPIPRAZOLE
     Dosage: 15 MILLIGRAM, QD
     Route: 048
     Dates: start: 20210120
  8. ABILIFY MAINTENA [Suspect]
     Active Substance: ARIPIPRAZOLE
     Indication: Product used for unknown indication
     Dosage: 800 MILLIGRAM (800 MG, UNK)
     Route: 065
     Dates: start: 20210128
  9. VALPROIC ACID [Suspect]
     Active Substance: VALPROIC ACID
     Indication: Product used for unknown indication
     Dosage: INCREASING THE DOSE GRADUALLY UP TO 700 MG/DAY
     Route: 065
     Dates: start: 20210120, end: 20210214
  10. RIVOTRIL [Concomitant]
     Active Substance: CLONAZEPAM
     Indication: Mania
     Dosage: UNK
     Route: 065
     Dates: start: 2007
  11. VALPROIC ACID [Concomitant]
     Active Substance: VALPROIC ACID
     Indication: Product used for unknown indication
     Dosage: UNK
     Route: 065

REACTIONS (14)
  - Speech disorder [Not Recovered/Not Resolved]
  - Cellulitis [Unknown]
  - Keratoconus [Unknown]
  - Incontinence [Not Recovered/Not Resolved]
  - Oxygen saturation decreased [Recovered/Resolved]
  - Parkinsonism [Unknown]
  - COVID-19 [Recovered/Resolved]
  - Depressed level of consciousness [Recovered/Resolved]
  - Superinfection bacterial [Recovered/Resolved]
  - Pneumonia aspiration [Recovered/Resolved]
  - Psychotic disorder [Unknown]
  - Neuroleptic malignant syndrome [Not Recovered/Not Resolved]
  - Urinary retention [Not Recovered/Not Resolved]
  - Overdose [Unknown]

NARRATIVE: CASE EVENT DATE: 20210128
